FAERS Safety Report 5788400-9 (Version None)
Quarter: 2008Q2

REPORT INFORMATION
  Report Type: 
  Country: None (occurrence: None)
  Receive Date: 20080625
  Receipt Date: 20080618
  Transmission Date: 20081010
  Serious: Yes (Other)
  Sender: FDA-Public Use
  Company Number: US-PFIZER INC-2008051192

PATIENT
  Sex: Male

DRUGS (7)
  1. XANAX [Suspect]
     Indication: DEPRESSION
     Dates: start: 20031001, end: 20070101
  2. XANAX [Suspect]
     Indication: ANXIETY
  3. SEROQUEL [Suspect]
     Dates: start: 20031001, end: 20070101
  4. WELLBUTRIN [Suspect]
     Dates: start: 20031001, end: 20070101
  5. LEXAPRO [Suspect]
     Dates: start: 20031001, end: 20070101
  6. RESTORIL [Suspect]
     Dates: start: 20031001, end: 20070101
  7. CYMBALTA [Suspect]
     Dates: start: 20031001, end: 20070101

REACTIONS (24)
  - ANXIETY [None]
  - BLOOD CHOLESTEROL INCREASED [None]
  - BLOOD TRIGLYCERIDES ABNORMAL [None]
  - BRUXISM [None]
  - CONVULSION [None]
  - DEPRESSION [None]
  - FEELING ABNORMAL [None]
  - HALLUCINATION [None]
  - HEADACHE [None]
  - HYPERHIDROSIS [None]
  - HYPERTENSION [None]
  - INSOMNIA [None]
  - NIGHTMARE [None]
  - PAIN [None]
  - RENAL FAILURE [None]
  - ROAD TRAFFIC ACCIDENT [None]
  - SCREAMING [None]
  - SEDATION [None]
  - SLEEP APNOEA SYNDROME [None]
  - SUICIDAL IDEATION [None]
  - SUICIDE ATTEMPT [None]
  - TARDIVE DYSKINESIA [None]
  - THYROID DISORDER [None]
  - WEIGHT DECREASED [None]
